FAERS Safety Report 8180057-5 (Version None)
Quarter: 2012Q1

REPORT INFORMATION
  Report Type: 
  Country: None (occurrence: None)
  Receive Date: 20120302
  Receipt Date: 20120302
  Transmission Date: 20120608
  Serious: No
  Sender: FDA-Public Use
  Company Number: None

PATIENT
  Age: 46 Year
  Sex: Female
  Weight: 52.616 kg

DRUGS (1)
  1. NORGESTIMATE/ETHINYL ESTRADIOL [Suspect]
     Indication: MENSTRUAL DISORDER
     Dosage: VARIES BY WEEK
     Route: 048
     Dates: start: 20111101, end: 20120301

REACTIONS (2)
  - METRORRHAGIA [None]
  - PRODUCT QUALITY ISSUE [None]
